FAERS Safety Report 16431259 (Version 1)
Quarter: 2019Q2

REPORT INFORMATION
  Report Type: Report from Study
  Country: ES (occurrence: ES)
  Receive Date: 20190614
  Receipt Date: 20190614
  Transmission Date: 20190711
  Serious: Yes (Death)
  Sender: FDA-Public Use
  Company Number: ES-PFIZER INC-2019253991

PATIENT

DRUGS (2)
  1. OXALIPLATIN. [Suspect]
     Active Substance: OXALIPLATIN
     Indication: COLORECTAL CANCER METASTATIC
     Dosage: 130 MG/M2, CYCLIC(AS A 2-H INFUSION, ON DAY 1 OF 3-WEEK CYCLES)
  2. RALTITREXED [Suspect]
     Active Substance: RALTITREXED
     Indication: COLORECTAL CANCER METASTATIC
     Dosage: 3 MG/M2, CYCLIC (AS A 15-MIN INFUSION, FOLLOWED 45 MIN LATER BY OXALIPLATIN)

REACTIONS (1)
  - Septic shock [Fatal]
